FAERS Safety Report 5169320-X (Version None)
Quarter: 2006Q4

REPORT INFORMATION
  Report Type: 
  Country: None (occurrence: None)
  Receive Date: 20061201
  Receipt Date: 20061129
  Transmission Date: 20070319
  Serious: Yes (Hospitalization)
  Sender: FDA-Public Use
  Company Number: 20060041USST

PATIENT
  Age: 57 Year
  Sex: Male

DRUGS (3)
  1. LEVOCARNIL [Suspect]
     Indication: PAIN IN EXTREMITY
     Dosage: 100 MG/ML
     Dates: start: 20050624, end: 20050902
  2. RIBAVIRIN [Concomitant]
  3. PEGASYS [Concomitant]

REACTIONS (2)
  - FALL [None]
  - SYNCOPE VASOVAGAL [None]
